FAERS Safety Report 14088760 (Version 1)
Quarter: 2017Q4

REPORT INFORMATION
  Report Type: Spontaneous
  Country: US (occurrence: US)
  Receive Date: 20171013
  Receipt Date: 20171013
  Transmission Date: 20180321
  Serious: No
  Sender: FDA-Public Use
  Company Number: US-FRESENIUS KABI-FK201708396

PATIENT

DRUGS (1)
  1. SODIUM CHLORIDE INJECTION, USP 0.9% [Suspect]
     Active Substance: SODIUM CHLORIDE
     Indication: PRODUCT USED FOR UNKNOWN INDICATION
     Route: 065

REACTIONS (1)
  - Application site pain [Unknown]
